FAERS Safety Report 14957347 (Version 1)
Quarter: 2018Q2

REPORT INFORMATION
  Report Type: Spontaneous
  Country: US (occurrence: US)
  Receive Date: 20180509
  Receipt Date: 20180509
  Transmission Date: 20180711
  Serious: No
  Sender: FDA-Public Use
  Company Number: None

PATIENT
  Age: 64 Year
  Sex: Male
  Weight: 93.94 kg

DRUGS (1)
  1. HYDROMORPHONE [Suspect]
     Active Substance: HYDROMORPHONE
     Indication: NEPHRECTOMY
     Route: 042
     Dates: start: 20180315, end: 20180315

REACTIONS (2)
  - Incorrect dose administered [None]
  - Sedation [None]

NARRATIVE: CASE EVENT DATE: 20180315
